FAERS Safety Report 16795248 (Version 6)
Quarter: 2020Q3

REPORT INFORMATION
  Report Type: Report from Study
  Country: JP (occurrence: JP)
  Receive Date: 20190911
  Receipt Date: 20200727
  Transmission Date: 20201102
  Serious: Yes (Hospitalization, Other)
  Sender: FDA-Public Use
  Company Number: JP-ASTRAZENECA-2019SF06523

PATIENT
  Age: 21591 Day
  Sex: Female

DRUGS (54)
  1. BEVACIZUMAB. [Concomitant]
     Active Substance: BEVACIZUMAB
     Indication: OVARIAN CANCER
     Dosage: 900.0MG/KG ONCE/SINGLE ADMINISTRATION
     Route: 065
     Dates: start: 20191031, end: 20191031
  2. PACLITAXEL. [Concomitant]
     Active Substance: PACLITAXEL
     Indication: OVARIAN CANCER
     Dosage: 295.0MG ONCE/SINGLE ADMINISTRATION
     Route: 065
     Dates: start: 20190417, end: 20190417
  3. RANITIDINE. [Concomitant]
     Active Substance: RANITIDINE
     Indication: PREMEDICATION
     Route: 042
     Dates: start: 20190306, end: 20190703
  4. SOLDEM 3A [Concomitant]
     Active Substance: CARBOHYDRATES\POTASSIUM CHLORIDE\SODIUM CHLORIDE\SODIUM LACTATE
     Indication: FLUID REPLACEMENT
     Route: 042
     Dates: start: 20190513, end: 20190514
  5. MERCAZOLE [Concomitant]
     Active Substance: CARBIMAZOLE
     Indication: HYPERTHYROIDISM
     Route: 048
     Dates: start: 20190607, end: 20190610
  6. DURVALUMAB. [Suspect]
     Active Substance: DURVALUMAB
     Indication: OVARIAN CANCER
     Dosage: 1120 MG Q3W FROM DAY 1 OF CYCLE 2 FOR A TOTAL OF 15 MONTHS OF TOTAL TREATMENT
     Route: 042
     Dates: start: 20190327, end: 20190327
  7. DURVALUMAB. [Suspect]
     Active Substance: DURVALUMAB
     Indication: OVARIAN CANCER
     Dosage: 1120 MG Q3W FROM DAY 1 OF CYCLE 2 FOR A TOTAL OF 15 MONTHS OF TOTAL TREATMENT
     Route: 042
     Dates: start: 20190417, end: 20190417
  8. BEVACIZUMAB. [Concomitant]
     Active Substance: BEVACIZUMAB
     Indication: OVARIAN CANCER
     Dosage: 900.0MG/KG ONCE/SINGLE ADMINISTRATION
     Route: 065
     Dates: start: 20200402, end: 20200402
  9. BEVACIZUMAB. [Concomitant]
     Active Substance: BEVACIZUMAB
     Indication: OVARIAN CANCER
     Dosage: 900.0MG/KG ONCE/SINGLE ADMINISTRATION
     Route: 065
     Dates: start: 20200515, end: 20200515
  10. PACLITAXEL. [Concomitant]
     Active Substance: PACLITAXEL
     Indication: OVARIAN CANCER
     Dosage: 295.0MG ONCE/SINGLE ADMINISTRATION
     Route: 065
     Dates: start: 20190327, end: 20190327
  11. MAGNESIUM OXIDE. [Concomitant]
     Active Substance: MAGNESIUM OXIDE
     Indication: CONSTIPATION
     Route: 048
     Dates: start: 20190305
  12. DEXART [Concomitant]
     Active Substance: DEXAMETHASONE SODIUM PHOSPHATE
     Indication: PREMEDICATION
     Route: 042
     Dates: start: 20190306, end: 20190703
  13. SOLACET F [Concomitant]
     Active Substance: CALCIUM CHLORIDE\POTASSIUM CHLORIDE\SODIUM ACETATE\SODIUM CHLORIDE
     Indication: FLUID REPLACEMENT
     Route: 042
     Dates: start: 20190306, end: 20190703
  14. BEVACIZUMAB. [Concomitant]
     Active Substance: BEVACIZUMAB
     Indication: OVARIAN CANCER
     Dosage: 900.0MG/KG ONCE/SINGLE ADMINISTRATION
     Route: 065
     Dates: start: 20191121, end: 20191121
  15. NERIZA [Concomitant]
     Indication: HAEMORRHOIDS
     Dosage: 1 APPLICATION, DAILY
     Route: 054
     Dates: start: 20190417
  16. MERCAZOLE [Concomitant]
     Active Substance: CARBIMAZOLE
     Indication: HYPERTHYROIDISM
     Route: 048
     Dates: start: 20190620, end: 20190806
  17. MERCAZOLE [Concomitant]
     Active Substance: CARBIMAZOLE
     Indication: HYPERTHYROIDISM
     Route: 048
     Dates: start: 20190912, end: 20190925
  18. MERCAZOLE [Concomitant]
     Active Substance: CARBIMAZOLE
     Indication: HYPERTHYROIDISM
     Route: 048
     Dates: start: 20190926
  19. DURVALUMAB. [Suspect]
     Active Substance: DURVALUMAB
     Indication: OVARIAN CANCER
     Dosage: 1120 MG Q3W FROM DAY 1 OF CYCLE 2 FOR A TOTAL OF 15 MONTHS OF TOTAL TREATMENT
     Route: 042
     Dates: start: 20190612, end: 20190612
  20. OLAPARIB. [Suspect]
     Active Substance: OLAPARIB
     Indication: OVARIAN CANCER
     Route: 048
  21. BEVACIZUMAB. [Concomitant]
     Active Substance: BEVACIZUMAB
     Indication: OVARIAN CANCER
     Dosage: 970.0MG ONCE/SINGLE ADMINISTRATION
     Route: 065
     Dates: start: 20190612, end: 20190612
  22. BEVACIZUMAB. [Concomitant]
     Active Substance: BEVACIZUMAB
     Indication: OVARIAN CANCER
     Dosage: 970.0MG/KG ONCE/SINGLE ADMINISTRATION
     Route: 065
     Dates: start: 20190703, end: 20190703
  23. BEVACIZUMAB. [Concomitant]
     Active Substance: BEVACIZUMAB
     Indication: OVARIAN CANCER
     Dosage: 900.0MG/KG ONCE/SINGLE ADMINISTRATION
     Route: 065
     Dates: start: 20200312, end: 20200312
  24. CARBOPLATIN. [Concomitant]
     Active Substance: CARBOPLATIN
     Indication: OVARIAN CANCER
     Dosage: 652.0MG ONCE/SINGLE ADMINISTRATION
     Route: 065
     Dates: start: 20190306, end: 20190306
  25. CARBOPLATIN. [Concomitant]
     Active Substance: CARBOPLATIN
     Indication: OVARIAN CANCER
     Dosage: 652.0MG ONCE/SINGLE ADMINISTRATION
     Route: 065
     Dates: start: 20190703, end: 20190703
  26. PACLITAXEL. [Concomitant]
     Active Substance: PACLITAXEL
     Indication: OVARIAN CANCER
     Dosage: 295.0MG ONCE/SINGLE ADMINISTRATION
     Route: 065
     Dates: start: 20190612, end: 20190612
  27. CARVEDILOL. [Concomitant]
     Active Substance: CARVEDILOL
     Indication: HYPERTHYROIDISM
     Route: 048
     Dates: start: 20190607
  28. GRANISETRON [Concomitant]
     Active Substance: GRANISETRON
     Indication: PREMEDICATION
     Route: 042
     Dates: start: 20190306, end: 20190703
  29. BEVACIZUMAB. [Concomitant]
     Active Substance: BEVACIZUMAB
     Indication: OVARIAN CANCER
     Dosage: 970.0MG ONCE/SINGLE ADMINISTRATION
     Route: 065
     Dates: start: 20190327, end: 20190327
  30. BEVACIZUMAB. [Concomitant]
     Active Substance: BEVACIZUMAB
     Indication: OVARIAN CANCER
     Dosage: 900.0MG/KG ONCE/SINGLE ADMINISTRATION
     Route: 065
     Dates: start: 20191010, end: 20191010
  31. BEVACIZUMAB. [Concomitant]
     Active Substance: BEVACIZUMAB
     Indication: OVARIAN CANCER
     Dosage: 900.0MG/KG ONCE/SINGLE ADMINISTRATION
     Route: 065
     Dates: start: 20191212, end: 20191212
  32. BEVACIZUMAB. [Concomitant]
     Active Substance: BEVACIZUMAB
     Indication: OVARIAN CANCER
     Dosage: 900.0MG/KG ONCE/SINGLE ADMINISTRATION
     Route: 065
     Dates: start: 20200109, end: 20200109
  33. LOXOPROFEN [Concomitant]
     Active Substance: LOXOPROFEN
     Indication: HEADACHE
     Route: 048
     Dates: start: 20190517, end: 20190523
  34. ZOLPIDEM TARTRATE. [Concomitant]
     Active Substance: ZOLPIDEM TARTRATE
     Indication: INSOMNIA
     Route: 048
     Dates: start: 20190520
  35. BISONO [Concomitant]
     Active Substance: BISOPROLOL
     Indication: HYPERTHYROIDISM
     Route: 062
     Dates: start: 20190530
  36. POLARAMINE [Concomitant]
     Active Substance: DEXCHLORPHENIRAMINE MALEATE
     Indication: PREMEDICATION
     Route: 042
     Dates: start: 20190306, end: 20190703
  37. MERCAZOLE [Concomitant]
     Active Substance: CARBIMAZOLE
     Indication: HYPERTHYROIDISM
     Route: 048
     Dates: start: 20190607
  38. BEVACIZUMAB. [Concomitant]
     Active Substance: BEVACIZUMAB
     Indication: OVARIAN CANCER
     Dosage: 900.0MG/KG ONCE/SINGLE ADMINISTRATION
     Route: 065
     Dates: start: 20200605, end: 20200605
  39. BEVACIZUMAB. [Concomitant]
     Active Substance: BEVACIZUMAB
     Indication: OVARIAN CANCER
     Dosage: 900.0MG/KG ONCE/SINGLE ADMINISTRATION
     Route: 065
     Dates: start: 20200626, end: 20200626
  40. CARBOPLATIN. [Concomitant]
     Active Substance: CARBOPLATIN
     Indication: OVARIAN CANCER
     Dosage: 652.0MG ONCE/SINGLE ADMINISTRATION
     Route: 065
     Dates: start: 20190612, end: 20190612
  41. PACLITAXEL. [Concomitant]
     Active Substance: PACLITAXEL
     Indication: OVARIAN CANCER
     Dosage: 295.0MG ONCE/SINGLE ADMINISTRATION
     Route: 065
     Dates: start: 20190306, end: 20190306
  42. ALOSENN [Concomitant]
     Indication: CONSTIPATION
     Route: 048
     Dates: start: 20190308
  43. LOXOPROFEN [Concomitant]
     Active Substance: LOXOPROFEN
     Indication: HEADACHE
     Route: 048
     Dates: start: 20190329
  44. SOLDEM 3A [Concomitant]
     Active Substance: CARBOHYDRATES\POTASSIUM CHLORIDE\SODIUM CHLORIDE\SODIUM LACTATE
     Indication: FLUID REPLACEMENT
     Route: 042
     Dates: start: 20190307, end: 20190704
  45. SOLDEM 3A [Concomitant]
     Active Substance: CARBOHYDRATES\POTASSIUM CHLORIDE\SODIUM CHLORIDE\SODIUM LACTATE
     Indication: FLUID REPLACEMENT
     Route: 042
     Dates: start: 20190515, end: 20190515
  46. DURVALUMAB. [Suspect]
     Active Substance: DURVALUMAB
     Indication: OVARIAN CANCER
     Dosage: 1120 MG Q3W FROM DAY 1 OF CYCLE 2 FOR A TOTAL OF 15 MONTHS OF TOTAL TREATMENT
     Route: 042
     Dates: start: 20190703, end: 20190703
  47. BEVACIZUMAB. [Concomitant]
     Active Substance: BEVACIZUMAB
     Indication: OVARIAN CANCER
     Dosage: 900.0MG/KG ONCE/SINGLE ADMINISTRATION
     Route: 065
     Dates: start: 20200130, end: 20200130
  48. CARBOPLATIN. [Concomitant]
     Active Substance: CARBOPLATIN
     Indication: OVARIAN CANCER
     Dosage: 652.0MG ONCE/SINGLE ADMINISTRATION
     Route: 065
     Dates: start: 20190327, end: 20190327
  49. CARBOPLATIN. [Concomitant]
     Active Substance: CARBOPLATIN
     Indication: OVARIAN CANCER
     Dosage: 652.0MG ONCE/SINGLE ADMINISTRATION
     Route: 065
     Dates: start: 20190417, end: 20190417
  50. PACLITAXEL. [Concomitant]
     Active Substance: PACLITAXEL
     Indication: OVARIAN CANCER
     Dosage: 295.0MG ONCE/SINGLE ADMINISTRATION
     Route: 065
     Dates: start: 20190703, end: 20190703
  51. MERCAZOLE [Concomitant]
     Active Substance: CARBIMAZOLE
     Indication: HYPERTHYROIDISM
     Route: 048
     Dates: start: 20190611, end: 20190619
  52. BEVACIZUMAB. [Concomitant]
     Active Substance: BEVACIZUMAB
     Indication: OVARIAN CANCER
     Dosage: 900.0MG/KG ONCE/SINGLE ADMINISTRATION
     Route: 065
     Dates: start: 20200220, end: 20200220
  53. OMNIPAQUE [Concomitant]
     Active Substance: IOHEXOL
     Indication: SCAN WITH CONTRAST
     Route: 042
     Dates: start: 20190301
  54. MERCAZOLE [Concomitant]
     Active Substance: CARBIMAZOLE
     Indication: HYPERTHYROIDISM
     Route: 048
     Dates: start: 20190622, end: 20190911

REACTIONS (2)
  - Hepatic function abnormal [Recovered/Resolved]
  - Drug-induced liver injury [Recovered/Resolved]

NARRATIVE: CASE EVENT DATE: 20190711
